FAERS Safety Report 4336350-7 (Version None)
Quarter: 2004Q2

REPORT INFORMATION
  Report Type: 
  Country: None (occurrence: None)
  Receive Date: 20040407
  Receipt Date: 20040324
  Transmission Date: 20050107
  Serious: Yes (Hospitalization, Other)
  Sender: FDA-Public Use
  Company Number: USA040363116

PATIENT
  Age: 77 Year
  Sex: Male

DRUGS (11)
  1. FORTEO [Suspect]
     Indication: OSTEOPOROSIS
     Dates: start: 20040101
  2. METHOTREXATE [Concomitant]
  3. NEXIUM (ESOMAPRAZOLE) [Concomitant]
  4. VICODIN [Concomitant]
  5. ULTRAM [Concomitant]
  6. CELEBREX [Concomitant]
  7. ZOCOR [Concomitant]
  8. LANOXIN [Concomitant]
  9. MULTI-VITAMIN [Concomitant]
  10. LEVOTHYROXINE SODIUM [Concomitant]
  11. VALIUM [Concomitant]

REACTIONS (3)
  - DIZZINESS [None]
  - HEADACHE [None]
  - JOINT DISLOCATION [None]
